FAERS Safety Report 4322502-9 (Version None)
Quarter: 2004Q1

REPORT INFORMATION
  Report Type: 
  Country: None (occurrence: None)
  Receive Date: 20040323
  Receipt Date: 20040323
  Transmission Date: 20041129
  Serious: Yes (Hospitalization)
  Sender: FDA-Public Use
  Company Number: None

PATIENT
  Age: 88 Year
  Sex: Female

DRUGS (12)
  1. CLOPIDOGREL BISULFATE [Suspect]
     Dosage: 75 MG DAILY ORAL
     Route: 048
     Dates: start: 20030710, end: 20040109
  2. ASPIRIN [Suspect]
     Indication: PROPHYLAXIS
     Dosage: 81MG DAILY ORAL
     Route: 048
     Dates: start: 20030710, end: 20040109
  3. ASCORBIC ACID [Concomitant]
  4. PROTONIX [Concomitant]
  5. INSULIN [Concomitant]
  6. BUSPAR [Concomitant]
  7. ARICEPT [Concomitant]
  8. FERROUS SULFATE TAB [Concomitant]
  9. PRINIVIL [Concomitant]
  10. NORVASC [Concomitant]
  11. PROAMATINE [Concomitant]
  12. MISOPROSTOL [Concomitant]

REACTIONS (2)
  - GASTROINTESTINAL HAEMORRHAGE [None]
  - SMALL INTESTINAL HAEMORRHAGE [None]
